FAERS Safety Report 18237456 (Version 3)
Quarter: 2020Q3

REPORT INFORMATION
  Report Type: Spontaneous
  Country: CZ (occurrence: CZ)
  Receive Date: 20200907
  Receipt Date: 20200928
  Transmission Date: 20201103
  Serious: Yes (Death, Life-Threatening, Hospitalization, Disabling, Other)
  Sender: FDA-Public Use
  Company Number: CZ-SA-2020SA235306

PATIENT

DRUGS (21)
  1. DEXOKET [Concomitant]
     Dosage: 25 MG, PRN FOR NIGHT
  2. VALSACOR [Concomitant]
     Active Substance: VALSARTAN
     Dosage: 80 MG, QD
  3. HELIDES [Concomitant]
     Dosage: 40 MG; 1?0?0
  4. BELOGENT [Concomitant]
  5. KEVZARA [Suspect]
     Active Substance: SARILUMAB
     Indication: RHEUMATOID ARTHRITIS
     Dosage: 200 MG, QOW
     Route: 058
     Dates: start: 20200319, end: 20200723
  6. FOLIC ACID. [Concomitant]
     Active Substance: FOLIC ACID
  7. DORETA [Concomitant]
     Active Substance: ACETAMINOPHEN\TRAMADOL HYDROCHLORIDE
     Indication: PAIN
     Dosage: 75MG/650MG AS NEEDED
  8. XELJANZ [Concomitant]
     Active Substance: TOFACITINIB CITRATE
     Dosage: UNK
     Dates: start: 201909, end: 202003
  9. METHOTREXATE. [Suspect]
     Active Substance: METHOTREXATE
     Indication: RHEUMATOID ARTHRITIS
     Dosage: 20 MG QW
     Route: 048
     Dates: start: 201006, end: 202007
  10. PREDNISONE. [Suspect]
     Active Substance: PREDNISONE
     Dosage: UNK
     Dates: start: 201909, end: 202003
  11. EUTHYROX [Concomitant]
     Active Substance: LEVOTHYROXINE SODIUM
     Dosage: 88 UG; 1/2?0?0
  12. B?COMPLEX [AMINOBENZOIC ACID;CALCIUM PANTOTHENATE;CYANOCOBALAMIN;NICOT [Concomitant]
     Dosage: UNK, QD
  13. CLOTRIMAZOLE. [Concomitant]
     Active Substance: CLOTRIMAZOLE
  14. METHOTREXATE. [Suspect]
     Active Substance: METHOTREXATE
     Dosage: 20 MG, QW
     Dates: start: 201909, end: 202003
  15. VEROSPIRON [Concomitant]
     Active Substance: SPIRONOLACTONE
     Dosage: 25 MG; 1?0?0
  16. KINITO [Concomitant]
     Indication: ABDOMINAL DISTENSION
     Dosage: UNK, PRN
  17. TARDYFERON [Concomitant]
     Active Substance: FERROUS SULFATE
     Dosage: 80 MG, CONSTIPATION, SHE BOUGHT LIQUID IRON FROM A HEALER
  18. CALTRATE [Concomitant]
     Active Substance: CALCIUM CARBONATE
     Dosage: 600/400 ONCE A DAY, LOW?MEDIUM DIETARY CALCIUM INTAKE
  19. VIGANTOL [COLECALCIFEROL] [Concomitant]
     Active Substance: CHOLECALCIFEROL
     Dosage: 20 GTT DROPS, BIW
  20. PREDNISONE. [Suspect]
     Active Substance: PREDNISONE
     Indication: RHEUMATOID ARTHRITIS
     Dosage: 2.5 MG, QOD
     Route: 048
     Dates: start: 201006, end: 202007
  21. DETRALEX [Concomitant]
     Active Substance: DIOSMIN\HESPERIDIN
     Dosage: UNK, Q12H

REACTIONS (14)
  - Cardiac arrest [Fatal]
  - Gastrointestinal necrosis [Fatal]
  - Skin discolouration [Fatal]
  - Gastrointestinal disorder [Fatal]
  - Lung infiltration [Fatal]
  - Septic shock [Fatal]
  - Procedural intestinal perforation [Fatal]
  - Pneumonia [Fatal]
  - Vomiting [Fatal]
  - Anuria [Fatal]
  - Abdominal pain [Fatal]
  - Peritonitis [Fatal]
  - Dehiscence [Fatal]
  - Bradycardia [Fatal]

NARRATIVE: CASE EVENT DATE: 202007
